FAERS Safety Report 23400864 (Version 1)
Quarter: 2024Q1

REPORT INFORMATION
  Report Type: Report from Study
  Country: US (occurrence: US)
  Receive Date: 20240115
  Receipt Date: 20240115
  Transmission Date: 20240410
  Serious: Yes (Hospitalization, Other)
  Sender: FDA-Public Use
  Company Number: US-GILEAD-2024-0658096

PATIENT
  Age: 51 Year
  Sex: Female

DRUGS (5)
  1. AZTREONAM LYSINE [Suspect]
     Active Substance: AZTREONAM LYSINE
     Indication: Product used for unknown indication
     Dosage: UNK
     Route: 065
     Dates: start: 20220524
  2. CELLCEPT [Suspect]
     Active Substance: MYCOPHENOLATE MOFETIL
     Indication: Product used for unknown indication
     Dosage: UNK
     Route: 065
  3. CELLCEPT [Suspect]
     Active Substance: MYCOPHENOLATE MOFETIL
     Dosage: UNK (INCREASED DOSE)
     Route: 065
  4. PREDNISOLONE [Concomitant]
     Active Substance: PREDNISOLONE
  5. ELIQUIS [Concomitant]
     Active Substance: APIXABAN

REACTIONS (10)
  - Surgery [Unknown]
  - Cystic fibrosis lung [Unknown]
  - Cystic fibrosis gastrointestinal disease [Unknown]
  - Wheezing [Unknown]
  - Nasal inflammation [Unknown]
  - Nasal congestion [Unknown]
  - Productive cough [Unknown]
  - Cough [Unknown]
  - Diarrhoea [Unknown]
  - Product dose omission issue [Unknown]
